FAERS Safety Report 7733614-1 (Version None)
Quarter: 2011Q3

REPORT INFORMATION
  Report Type: 
  Country: None (occurrence: None)
  Receive Date: 20110907
  Receipt Date: 20110829
  Transmission Date: 20111222
  Serious: Yes (Other)
  Sender: FDA-Public Use
  Company Number: US-BRISTOL-MYERS SQUIBB COMPANY-16012890

PATIENT
  Age: 49 Year
  Sex: Female

DRUGS (4)
  1. CLADRIBINE [Suspect]
  2. VINBLASTINE SULFATE [Suspect]
  3. FLUDARABINE PHOSPHATE [Suspect]
  4. CYCLOPHOSPHAMIDE [Suspect]

REACTIONS (3)
  - NEUTROPENIA [None]
  - NEUROPATHY PERIPHERAL [None]
  - SKIN DISORDER [None]
